FAERS Safety Report 5608145-5 (Version None)
Quarter: 2008Q1

REPORT INFORMATION
  Report Type: 
  Country: None (occurrence: None)
  Receive Date: 20080130
  Receipt Date: 20080122
  Transmission Date: 20080703
  Serious: Yes (Other)
  Sender: FDA-Public Use
  Company Number: GB-ASTRAZENECA-2007GB02528

PATIENT
  Age: 14433 Day
  Sex: Male
  Weight: 64 kg

DRUGS (4)
  1. NEXIUM [Suspect]
     Indication: BARRETT'S OESOPHAGUS
     Route: 048
     Dates: start: 20070719, end: 20071102
  2. ASPIRIN [Suspect]
     Indication: BARRETT'S OESOPHAGUS
     Dates: start: 20070719, end: 20071102
  3. ZOPICLONE [Concomitant]
     Indication: INSOMNIA
     Dates: start: 20071001
  4. LOPERAMIDE HCL [Concomitant]
     Indication: DIARRHOEA
     Dates: start: 20070101

REACTIONS (2)
  - DEPRESSED MOOD [None]
  - SUICIDE ATTEMPT [None]
